FAERS Safety Report 20331387 (Version 1)
Quarter: 2022Q1

REPORT INFORMATION
  Report Type: Spontaneous
  Country: US (occurrence: US)
  Receive Date: 20220113
  Receipt Date: 20220113
  Transmission Date: 20220424
  Serious: No
  Sender: FDA-Public Use
  Company Number: US-VIIV HEALTHCARE LIMITED-US2021266705

PATIENT
  Age: 49 Year
  Sex: Female

DRUGS (2)
  1. RILPIVIRINE [Suspect]
     Active Substance: RILPIVIRINE
     Indication: HIV infection
     Dosage: UNK UNK, Z, CABOTEGRAVIR 400MG/RILPIVIRINE 600MG IM EVERY MONTH
     Route: 030
     Dates: end: 20210104
  2. CABOTEGRAVIR [Suspect]
     Active Substance: CABOTEGRAVIR
     Indication: HIV infection
     Dosage: UNK UNK, Z, CABOTEGRAVIR 400MG/RILPIVIRINE 600MG IM EVERY MONTH
     Route: 030
     Dates: end: 20210104

REACTIONS (2)
  - Injection site pain [Unknown]
  - Feeling abnormal [Unknown]
